APPROVED DRUG PRODUCT: DOPAMINE HYDROCHLORIDE
Active Ingredient: DOPAMINE HYDROCHLORIDE
Strength: 160MG/ML
Dosage Form/Route: INJECTABLE;INJECTION
Application: A070826 | Product #001
Applicant: AMERICAN REGENT INC
Approved: Feb 11, 1987 | RLD: No | RS: No | Type: DISCN